FAERS Safety Report 17208582 (Version 1)
Quarter: 2019Q4

REPORT INFORMATION
  Report Type: Spontaneous
  Country: US (occurrence: US)
  Receive Date: 20191227
  Receipt Date: 20191227
  Transmission Date: 20200122
  Serious: No
  Sender: FDA-Public Use
  Company Number: US-PFIZER INC-2019554777

PATIENT
  Age: 55 Year
  Sex: Female

DRUGS (2)
  1. BUPRENORPHINE. [Suspect]
     Active Substance: BUPRENORPHINE
     Dosage: UNK
  2. NALOXONE HCL [Interacting]
     Active Substance: NALOXONE HYDROCHLORIDE
     Dosage: UNK

REACTIONS (1)
  - Drug interaction [Unknown]
